FAERS Safety Report 4401642-X (Version None)
Quarter: 2004Q3

REPORT INFORMATION
  Report Type: 
  Country: None (occurrence: None)
  Receive Date: 20040719
  Receipt Date: 20040705
  Transmission Date: 20050211
  Serious: Yes (Hospitalization)
  Sender: FDA-Public Use
  Company Number: FR-ROCHE-374015

PATIENT
  Sex: Male

DRUGS (3)
  1. CYMEVAN [Suspect]
     Route: 042
     Dates: end: 20040624
  2. SEROPRAM [Concomitant]
  3. INEXIUM [Concomitant]

REACTIONS (5)
  - NEUTROPENIA [None]
  - PYREXIA [None]
  - RASH [None]
  - TOXIC EPIDERMAL NECROLYSIS [None]
  - WHITE BLOOD CELL COUNT DECREASED [None]
